FAERS Safety Report 7075455-7 (Version None)
Quarter: 2010Q4

REPORT INFORMATION
  Report Type: 
  Country: None (occurrence: None)
  Receive Date: 20101030
  Receipt Date: 20100922
  Transmission Date: 20110411
  Serious: No
  Sender: FDA-Public Use
  Company Number: US-WYE-H17539210

PATIENT
  Age: 30 Year
  Sex: Male
  Weight: 72.64 kg

DRUGS (3)
  1. ALAVERT [Suspect]
     Indication: HYPERSENSITIVITY
     Dosage: 1 TABLET X 1
     Route: 048
     Dates: start: 20100914, end: 20100914
  2. ALAVERT [Suspect]
     Indication: SNEEZING
  3. ALAVERT [Suspect]
     Indication: RHINORRHOEA

REACTIONS (1)
  - DRUG INEFFECTIVE [None]
